FAERS Safety Report 25395649 (Version 1)
Quarter: 2025Q2

REPORT INFORMATION
  Report Type: Spontaneous
  Country: ES (occurrence: ES)
  Receive Date: 20250604
  Receipt Date: 20250604
  Transmission Date: 20250716
  Serious: Yes (Hospitalization)
  Sender: TEVA
  Company Number: None

PATIENT
  Age: 4 Month
  Sex: Male
  Weight: 2 kg

DRUGS (3)
  1. AMPHOTERICIN B [Suspect]
     Active Substance: AMPHOTERICIN B
     Indication: Sepsis neonatal
     Route: 042
     Dates: start: 20241231, end: 20250228
  2. MICAFUNGIN [Suspect]
     Active Substance: MICAFUNGIN SODIUM
     Indication: Sepsis neonatal
     Route: 042
     Dates: start: 20250109, end: 20250130
  3. MEROPENEM [Suspect]
     Active Substance: MEROPENEM
     Indication: Sepsis neonatal
     Route: 042
     Dates: start: 20250117, end: 20250121

REACTIONS (3)
  - Hepatocellular injury [Recovering/Resolving]
  - Hyperbilirubinaemia [Recovered/Resolved]
  - Concomitant disease aggravated [Recovered/Resolved]

NARRATIVE: CASE EVENT DATE: 20250101
